FAERS Safety Report 24121071 (Version 2)
Quarter: 2024Q3

REPORT INFORMATION
  Report Type: Spontaneous
  Country: HU (occurrence: HU)
  Receive Date: 20240722
  Receipt Date: 20240807
  Transmission Date: 20241017
  Serious: Yes (Hospitalization, Other)
  Sender: MYLAN
  Company Number: HU-GLAXOSMITHKLINE-HU2023EME178332

PATIENT
  Age: 35 Year
  Sex: Female

DRUGS (7)
  1. LAMOTRIGINE [Suspect]
     Active Substance: LAMOTRIGINE
     Indication: Bipolar disorder
     Dosage: UNK
     Route: 065
  2. VORTIOXETINE [Suspect]
     Active Substance: VORTIOXETINE HYDROBROMIDE
     Indication: Bipolar disorder
     Dosage: UNK
     Route: 065
  3. VENLAFAXINE HYDROCHLORIDE [Suspect]
     Active Substance: VENLAFAXINE HYDROCHLORIDE
     Indication: Bipolar disorder
     Dosage: 75 MILLIGRAM
     Route: 065
     Dates: start: 20230610, end: 20230617
  4. ALPRAZOLAM [Concomitant]
     Active Substance: ALPRAZOLAM
     Indication: Product used for unknown indication
     Dosage: UNK
     Route: 065
  5. LIRAGLUTIDE [Concomitant]
     Active Substance: LIRAGLUTIDE
     Indication: Product used for unknown indication
     Dosage: UNK
     Route: 065
  6. CINOLAZEPAM [Concomitant]
     Active Substance: CINOLAZEPAM
     Indication: Product used for unknown indication
     Dosage: UNK
     Route: 065
  7. DIOSMIN\HESPERIDIN [Concomitant]
     Active Substance: DIOSMIN\HESPERIDIN
     Indication: Product used for unknown indication
     Dosage: UNK
     Route: 065

REACTIONS (12)
  - Lichen planus [Recovering/Resolving]
  - Skin erosion [Recovering/Resolving]
  - Lip erosion [Unknown]
  - Skin plaque [Recovering/Resolving]
  - Dysphagia [Recovering/Resolving]
  - Blister [Recovering/Resolving]
  - Nikolsky^s sign [Recovering/Resolving]
  - Toxic epidermal necrolysis [Recovered/Resolved]
  - Rash pruritic [Recovering/Resolving]
  - Pyrexia [Unknown]
  - Rash papular [Recovering/Resolving]
  - Condition aggravated [Unknown]
